FAERS Safety Report 9514063 (Version 3)
Quarter: 2014Q1

REPORT INFORMATION
  Report Type: Spontaneous
  Country: US (occurrence: US)
  Receive Date: 20130910
  Receipt Date: 20140304
  Transmission Date: 20141002
  Serious: Yes (Hospitalization)
  Sender: FDA-Public Use
  Company Number: US-B.I. PHARMACEUTICALS,INC./RIDGEFIELD-2013-BI-27303BP

PATIENT
  Sex: Female
  Weight: 74.84 kg

DRUGS (15)
  1. VITAMIN D [Concomitant]
     Route: 048
  2. FERROUS SULFATE [Concomitant]
     Indication: ANAEMIA
     Dosage: 325 MG
     Route: 048
  3. MAGNESIUM OXIDE [Concomitant]
     Dosage: 800 MG
     Route: 048
  4. METOPROLOL [Concomitant]
     Dosage: 12.5 MG
     Route: 048
  5. OMEPRAZOLE [Concomitant]
     Dosage: 40 MG
     Route: 048
  6. PERCOCET [Concomitant]
     Route: 048
  7. ZEMPLAR [Concomitant]
     Dosage: 1 MCG
     Route: 048
  8. RAMIPRIL [Concomitant]
     Dosage: 2.5 MG
     Route: 048
  9. TRAZODONE [Concomitant]
     Route: 048
  10. PRADAXA [Suspect]
     Indication: ATRIAL FIBRILLATION
     Dosage: 300 MG
     Route: 048
     Dates: start: 20110712, end: 20110906
  11. TYLENOL [Concomitant]
     Route: 048
  12. ALLOPURINOL [Concomitant]
     Dosage: 150 MG
     Route: 048
  13. ASPIRIN [Concomitant]
     Dosage: 81 MG
     Route: 048
  14. BUMEX [Concomitant]
     Dosage: 4 MG
     Route: 048
  15. CALCIUM CARBONATE [Concomitant]
     Dosage: 2000 MG
     Route: 048

REACTIONS (4)
  - Gastrointestinal haemorrhage [Unknown]
  - Haemorrhagic anaemia [Unknown]
  - Renal failure acute [Unknown]
  - Ecchymosis [Unknown]
